FAERS Safety Report 7331640-8 (Version None)
Quarter: 2011Q1

REPORT INFORMATION
  Report Type: 
  Country: None (occurrence: None)
  Receive Date: 20110304
  Receipt Date: 20110222
  Transmission Date: 20110831
  Serious: Yes (Hospitalization)
  Sender: FDA-Public Use
  Company Number: JP-NOVOPROD-323935

PATIENT
  Age: 74 Year
  Sex: Female

DRUGS (5)
  1. APIDRA [Concomitant]
  2. NOVOLIN N [Suspect]
     Indication: TYPE 2 DIABETES MELLITUS
     Dosage: UNK
     Route: 058
  3. NOVORAPID CHU FLEXPEN [Concomitant]
  4. NOVOLIN R [Concomitant]
  5. LEVEMIR [Concomitant]

REACTIONS (3)
  - HYPOGLYCAEMIA [None]
  - LOSS OF CONSCIOUSNESS [None]
  - ANTI-INSULIN ANTIBODY POSITIVE [None]
